FAERS Safety Report 4712254-2 (Version None)
Quarter: 2005Q3

REPORT INFORMATION
  Report Type: 
  Country: None (occurrence: None)
  Receive Date: 20050712
  Receipt Date: 20050608
  Transmission Date: 20060218
  Serious: Yes (Other)
  Sender: FDA-Public Use
  Company Number: US-GLAXOSMITHKLINE-B0384281A

PATIENT
  Age: 1 Year
  Sex: Male

DRUGS (3)
  1. FLUTICASONE PROPIONATE + SALMETEROL XINAFOATE [Suspect]
     Indication: DRUG USE FOR UNKNOWN INDICATION
     Route: 055
     Dates: start: 20050422, end: 20050606
  2. FUSIDIC ACID [Concomitant]
     Route: 047
  3. NUTRAMIGEN [Concomitant]

REACTIONS (3)
  - ACCIDENTAL OVERDOSE [None]
  - DYSPNOEA [None]
  - PHARMACEUTICAL PRODUCT COMPLAINT [None]
